FAERS Safety Report 11076551 (Version 1)
Quarter: 2015Q2

REPORT INFORMATION
  Report Type: Spontaneous
  Country: US (occurrence: US)
  Receive Date: 20150429
  Receipt Date: 20150429
  Transmission Date: 20150821
  Serious: No
  Sender: FDA-Public Use
  Company Number: US-GLAXOSMITHKLINE-US2015057736

PATIENT
  Age: 28 Year
  Sex: Male

DRUGS (1)
  1. VALTREX [Suspect]
     Active Substance: VALACYCLOVIR HYDROCHLORIDE
     Indication: ORAL HERPES
     Dosage: 2 G, BID
     Route: 048
     Dates: start: 20150323

REACTIONS (13)
  - Hot flush [Recovered/Resolved]
  - Affect lability [Recovered/Resolved]
  - Lacrimation increased [Recovered/Resolved]
  - Oral disorder [Not Recovered/Not Resolved]
  - Somnolence [Recovered/Resolved]
  - Irritability [Recovered/Resolved]
  - Elevated mood [Recovered/Resolved]
  - Thirst [Not Recovered/Not Resolved]
  - Impatience [Recovered/Resolved]
  - Disturbance in social behaviour [Recovered/Resolved]
  - Mouth ulceration [Not Recovered/Not Resolved]
  - Dry mouth [Not Recovered/Not Resolved]
  - Fatigue [Recovered/Resolved]

NARRATIVE: CASE EVENT DATE: 20150323
